FAERS Safety Report 17584311 (Version 1)
Quarter: 2020Q1

REPORT INFORMATION
  Report Type: Spontaneous
  Country: FR (occurrence: FR)
  Receive Date: 20200326
  Receipt Date: 20200326
  Transmission Date: 20200409
  Serious: Yes (Hospitalization)
  Sender: FDA-Public Use
  Company Number: FR-ACCORD-177281

PATIENT
  Age: 63 Year
  Sex: Male
  Weight: 74 kg

DRUGS (20)
  1. CYANOCOBALAMIN. [Concomitant]
     Active Substance: CYANOCOBALAMIN
     Dosage: VITAMIN B12
  2. INEXIUM [Concomitant]
     Active Substance: ESOMEPRAZOLE
     Dosage: STRENGTH: 40 MG
  3. SPECIAFOLDINE [Concomitant]
     Active Substance: FOLIC ACID
     Dosage: STRENGTH: 0.4 MG TABLET
  4. DOLIPRANE [Concomitant]
     Active Substance: ACETAMINOPHEN
  5. ESCITALOPRAM [Concomitant]
     Active Substance: ESCITALOPRAM OXALATE
  6. FORLAX [Concomitant]
     Active Substance: POLYETHYLENE GLYCOL 4000
     Dosage: STRENGTH: 10 GRAM, POWDER FOR ORAL SOLUTION IN SACHET-DOSE
  7. APREPITANT. [Concomitant]
     Active Substance: APREPITANT
  8. ALIMTA [Suspect]
     Active Substance: PEMETREXED DISODIUM
     Indication: LUNG CARCINOMA CELL TYPE UNSPECIFIED STAGE IV
     Route: 042
     Dates: start: 20171215
  9. SIMVASTATIN. [Concomitant]
     Active Substance: SIMVASTATIN
  10. ONDANSETRON ACCORD [Concomitant]
     Active Substance: ONDANSETRON
  11. METHYLPREDNISOLONE MYLAN [Concomitant]
     Active Substance: METHYLPREDNISOLONE
  12. EZETIMIBE. [Concomitant]
     Active Substance: EZETIMIBE
  13. BISOCE [Concomitant]
     Active Substance: BISOPROLOL
     Dosage: STRENGTH: 5 MG, SCORED FILM-COATED TABLET
  14. ALPRAZOLAM. [Concomitant]
     Active Substance: ALPRAZOLAM
  15. CARBOPLATIN ACCORD [Suspect]
     Active Substance: CARBOPLATIN
     Indication: LUNG CARCINOMA CELL TYPE UNSPECIFIED STAGE IV
     Dosage: TREATMENT : 600 MG, TREATMENT 2 : 660 MG, TREATMENT 3 : 620 MG, TREATMENT 4 : 700 MG
     Route: 042
     Dates: start: 20171215, end: 20180216
  16. CLOPIDOGREL [Concomitant]
     Active Substance: CLOPIDOGREL BISULFATE
  17. PERINDOPRIL [Concomitant]
     Active Substance: PERINDOPRIL
  18. MEDROL [Concomitant]
     Active Substance: METHYLPREDNISOLONE
  19. GABAPENTIN. [Concomitant]
     Active Substance: GABAPENTIN
  20. FUROSEMIDE. [Concomitant]
     Active Substance: FUROSEMIDE

REACTIONS (2)
  - Condition aggravated [Recovered/Resolved]
  - Anaemia [Recovered/Resolved]

NARRATIVE: CASE EVENT DATE: 20180125
